FAERS Safety Report 5372186-6 (Version None)
Quarter: 2007Q2

REPORT INFORMATION
  Report Type: 
  Country: None (occurrence: None)
  Receive Date: 20070627
  Receipt Date: 20070626
  Transmission Date: 20071010
  Serious: Yes (Other)
  Sender: FDA-Public Use
  Company Number: A0660065A

PATIENT
  Age: 60 Year
  Sex: Male
  Weight: 85 kg

DRUGS (4)
  1. BIOVIR [Suspect]
     Indication: HIV INFECTION
     Dosage: 450MG TWICE PER DAY
     Route: 048
     Dates: start: 20070421
  2. KALETRA [Concomitant]
     Dosage: 250MG PER DAY
     Route: 048
     Dates: start: 20070421
  3. ALLOPURINOL [Concomitant]
     Dosage: 300MG PER DAY
     Route: 048
     Dates: start: 20070421
  4. FOLIC ACID [Concomitant]
     Dosage: 5MG TWICE PER DAY
     Route: 048
     Dates: start: 20070601

REACTIONS (3)
  - ANAEMIA [None]
  - LEUKOPENIA [None]
  - THROMBOCYTOPENIA [None]
